FAERS Safety Report 4414712-7 (Version None)
Quarter: 2004Q3

REPORT INFORMATION
  Report Type: 
  Country: None (occurrence: None)
  Receive Date: 20040804
  Receipt Date: 20030711
  Transmission Date: 20050211
  Serious: No
  Sender: FDA-Public Use
  Company Number: US-BRISTOL-MYERS SQUIBB COMPANY-12324141

PATIENT
  Age: 65 Year
  Sex: Female
  Weight: 82 kg

DRUGS (4)
  1. GLUCOVANCE [Suspect]
     Indication: DIABETES MELLITUS NON-INSULIN-DEPENDENT
     Route: 048
     Dates: start: 20030710
  2. PREMARIN [Concomitant]
  3. LASIX [Concomitant]
  4. REGULAR INSULIN [Concomitant]
     Dosage: 12 UNITS IN THE AM AND 12 UNITS IN THE PM

REACTIONS (3)
  - BLOOD GLUCOSE FLUCTUATION [None]
  - HYPERHIDROSIS [None]
  - TREMOR [None]
